FAERS Safety Report 5931266-4 (Version None)
Quarter: 2008Q4

REPORT INFORMATION
  Report Type: 
  Country: None (occurrence: None)
  Receive Date: 20081027
  Receipt Date: 20081022
  Transmission Date: 20090506
  Serious: Yes (Hospitalization)
  Sender: FDA-Public Use
  Company Number: FR-AVENTIS-200813766FR

PATIENT
  Age: 75 Year
  Sex: Male
  Weight: 75 kg

DRUGS (8)
  1. TAXOTERE [Suspect]
     Route: 042
     Dates: start: 20080117, end: 20080430
  2. AVASTIN [Suspect]
     Route: 042
     Dates: start: 20080117, end: 20080703
  3. CISPLATIN [Suspect]
     Route: 042
     Dates: start: 20080117, end: 20080430
  4. TRIATEC                            /00885601/ [Concomitant]
     Indication: DRUG USE FOR UNKNOWN INDICATION
     Route: 048
  5. FLUDEX                             /00340101/ [Concomitant]
     Indication: DRUG USE FOR UNKNOWN INDICATION
     Route: 048
  6. DI-ANTALVIC                        /00220901/ [Concomitant]
     Indication: DRUG USE FOR UNKNOWN INDICATION
     Route: 048
  7. ALLOPURINOL [Concomitant]
     Indication: DRUG USE FOR UNKNOWN INDICATION
     Route: 048
  8. MICARDIS [Concomitant]
     Indication: DRUG USE FOR UNKNOWN INDICATION
     Route: 048

REACTIONS (1)
  - LEUKOENCEPHALOPATHY [None]
